FAERS Safety Report 5371613-8 (Version None)
Quarter: 2007Q2

REPORT INFORMATION
  Report Type: 
  Country: None (occurrence: None)
  Receive Date: 20070615
  Receipt Date: 20070118
  Transmission Date: 20071010
  Serious: Yes (Hospitalization)
  Sender: FDA-Public Use
  Company Number: 200613701US

PATIENT
  Age: 69 Year
  Sex: Female

DRUGS (2)
  1. LANTUS [Suspect]
  2. LANTUS [Suspect]

REACTIONS (4)
  - BLOOD GLUCOSE ABNORMAL [None]
  - CHEST PAIN [None]
  - HYPOGLYCAEMIA [None]
  - INJECTION SITE EXTRAVASATION [None]
